FAERS Safety Report 9587021 (Version 3)
Quarter: 2013Q4

REPORT INFORMATION
  Report Type: Spontaneous
  Country: JP (occurrence: JP)
  Receive Date: 20131003
  Receipt Date: 20131119
  Transmission Date: 20140711
  Serious: Yes (Hospitalization, Other)
  Sender: FDA-Public Use
  Company Number: JP-TAKEDA-2013TJP001372

PATIENT
  Age: 77 Year
  Sex: Male

DRUGS (2)
  1. NESINA TABLETS 25MG [Suspect]
     Dosage: 25 MG, QD
     Route: 048
     Dates: start: 20120717
  2. AMARYL [Concomitant]
     Dosage: UNK
     Route: 048
     Dates: start: 20120717

REACTIONS (1)
  - Ileus [Recovered/Resolved]
